FAERS Safety Report 13730315 (Version 2)
Quarter: 2017Q3

REPORT INFORMATION
  Report Type: Spontaneous
  Country: US (occurrence: US)
  Receive Date: 20170707
  Receipt Date: 20170828
  Transmission Date: 20171127
  Serious: Yes (Death, Hospitalization)
  Sender: FDA-Public Use
  Company Number: US-JNJFOC-20170529720

PATIENT
  Age: 62 Year
  Sex: Female

DRUGS (2)
  1. XARELTO [Suspect]
     Active Substance: RIVAROXABAN
     Indication: PULMONARY EMBOLISM
     Dosage: 15 MG PER DAY FOR 21 DAYS AND THEN 20 MG PER DAY
     Route: 048
     Dates: start: 20150524, end: 20150611
  2. XARELTO [Suspect]
     Active Substance: RIVAROXABAN
     Indication: DEEP VEIN THROMBOSIS
     Dosage: 15 MG PER DAY FOR 21 DAYS AND THEN 20 MG PER DAY
     Route: 048
     Dates: start: 20150524, end: 20150611

REACTIONS (2)
  - Epistaxis [Recovered/Resolved]
  - Hypertension [Unknown]

NARRATIVE: CASE EVENT DATE: 20150601
